FAERS Safety Report 12497965 (Version 3)
Quarter: 2016Q3

REPORT INFORMATION
  Report Type: Spontaneous
  Country: JP (occurrence: JP)
  Receive Date: 20160626
  Receipt Date: 20160808
  Transmission Date: 20161109
  Serious: Yes (Hospitalization)
  Sender: FDA-Public Use
  Company Number: JP-TEVA-669409ISR

PATIENT
  Age: 75 Year
  Sex: Male
  Weight: 45 kg

DRUGS (9)
  1. FENTANYL. [Suspect]
     Active Substance: FENTANYL
     Indication: ANAESTHESIA
     Dosage: 200 MICROG
     Route: 065
  2. SEVOFLURANE. [Suspect]
     Active Substance: SEVOFLURANE
     Indication: ANAESTHESIA
     Dosage: 1.5 %
     Route: 050
  3. FENTANYL. [Suspect]
     Active Substance: FENTANYL
     Indication: EPIDURAL ANAESTHESIA
     Dosage: 500 MICROG AT 4 ML/HR-1
     Route: 065
  4. LEVOBUPIVACAINE [Suspect]
     Active Substance: LEVOBUPIVACAINE
     Indication: EPIDURAL ANAESTHESIA
     Dosage: 0.25%; 190 ML AT 4 ML/HR-1
     Route: 065
  5. PROPOFOL. [Suspect]
     Active Substance: PROPOFOL
     Indication: ANAESTHESIA
     Dosage: 100 MG
     Route: 065
  6. REMIFENTANIL [Suspect]
     Active Substance: REMIFENTANIL
     Indication: ANAESTHESIA
     Dosage: 0.15 TO 0.25 MICROG /KG -1/ MIN-1
     Route: 050
  7. ROCURONIUM BROMIDE. [Concomitant]
     Active Substance: ROCURONIUM BROMIDE
     Dosage: 50 MG
     Route: 065
  8. ROCURONIUM BROMIDE. [Concomitant]
     Active Substance: ROCURONIUM BROMIDE
     Dosage: 20 MG/HR-1
     Route: 050
  9. HEPARIN [Concomitant]
     Active Substance: HEPARIN SODIUM
     Dosage: 5000 UNITS
     Route: 065

REACTIONS (2)
  - Paralysis [Recovered/Resolved]
  - Extradural haematoma [Recovered/Resolved]
